FAERS Safety Report 5802209-9 (Version None)
Quarter: 2008Q3

REPORT INFORMATION
  Report Type: 
  Country: None (occurrence: None)
  Receive Date: 20080707
  Receipt Date: 20080625
  Transmission Date: 20090109
  Serious: Yes (Other)
  Sender: FDA-Public Use
  Company Number: JP-PFIZER INC-2008053920

PATIENT
  Sex: Female

DRUGS (9)
  1. XALATAN [Suspect]
     Indication: GLAUCOMA
     Route: 031
     Dates: start: 20080206, end: 20080516
  2. KARY UNI [Concomitant]
     Route: 031
  3. SANCOBA [Concomitant]
     Route: 031
  4. PATANOL [Concomitant]
     Route: 031
  5. SELBEX [Concomitant]
  6. WYPAX [Concomitant]
  7. SIMVASTATIN [Concomitant]
  8. PILSICAINIDE HYDROCHLORIDE [Concomitant]
  9. PAXIL [Concomitant]

REACTIONS (1)
  - CORNEAL DISORDER [None]
